FAERS Safety Report 12621795 (Version 2)
Quarter: 2016Q4

REPORT INFORMATION
  Report Type: Spontaneous
  Country: FR (occurrence: FR)
  Receive Date: 20160804
  Receipt Date: 20161202
  Transmission Date: 20170207
  Serious: Yes (Other)
  Sender: FDA-Public Use
  Company Number: FR-ABBVIE-16K-056-1690507-00

PATIENT
  Age: 35 Year
  Sex: Female

DRUGS (3)
  1. IMUREL [Concomitant]
     Active Substance: AZATHIOPRINE SODIUM
     Indication: PANCREATITIS
     Dates: start: 20151204, end: 20151219
  2. HUMIRA [Suspect]
     Active Substance: ADALIMUMAB
     Indication: CROHN^S DISEASE
     Route: 058
     Dates: start: 20151006, end: 201607
  3. HUMIRA [Suspect]
     Active Substance: ADALIMUMAB
     Route: 058
     Dates: start: 201607

REACTIONS (8)
  - Rhinalgia [Recovered/Resolved]
  - Hidradenitis [Unknown]
  - Angular cheilitis [Recovered/Resolved]
  - Staphylococcal infection [Unknown]
  - Rash pustular [Unknown]
  - Skin lesion [Unknown]
  - Ear injury [Unknown]
  - Folliculitis [Not Recovered/Not Resolved]

NARRATIVE: CASE EVENT DATE: 201511
